FAERS Safety Report 8354864-X (Version None)
Quarter: 2012Q2

REPORT INFORMATION
  Report Type: 
  Country: None (occurrence: None)
  Receive Date: 20120511
  Receipt Date: 20120501
  Transmission Date: 20120825
  Serious: Yes (Other)
  Sender: FDA-Public Use
  Company Number: CA-JNJFOC-20120503110

PATIENT
  Sex: Male
  Weight: 100.5 kg

DRUGS (14)
  1. REMICADE [Suspect]
     Dosage: 31ST INFUSION
     Route: 042
     Dates: start: 20120502
  2. PREDNISONE TAB [Concomitant]
     Indication: WEGENER'S GRANULOMATOSIS
     Route: 048
  3. ACTONEL [Concomitant]
     Indication: OSTEOPOROSIS
     Route: 048
  4. ASACOL [Concomitant]
     Indication: CROHN'S DISEASE
     Dosage: 3 TAB PER DAY
     Route: 065
  5. URSODIOL [Concomitant]
     Indication: HEPATIC ENZYME INCREASED
     Route: 048
  6. CALCIUM WITH VITAMIN D [Concomitant]
     Indication: OSTEOPOROSIS
     Route: 048
  7. TRAZODONE HCL [Concomitant]
     Indication: SLEEP DISORDER THERAPY
     Route: 048
  8. CODEINE SULFATE [Concomitant]
     Indication: PAIN
     Route: 065
  9. REMICADE [Suspect]
     Indication: CROHN'S DISEASE
     Route: 042
     Dates: start: 20080807
  10. PANTOPRAZOLE SODIUM [Concomitant]
     Indication: GASTRIC DISORDER
     Route: 048
  11. ESCITALOPRAM [Concomitant]
     Indication: DEPRESSION
     Route: 048
  12. TYLENOL W/ CODEINE NO. 3 [Concomitant]
     Indication: PAIN
     Route: 065
  13. HYDROXYZINE [Concomitant]
     Indication: ANTIALLERGIC THERAPY
     Route: 048
  14. TYLENOL (CAPLET) [Concomitant]
     Indication: PREMEDICATION
     Route: 048

REACTIONS (3)
  - EPISTAXIS [None]
  - SINUSITIS [None]
  - PULMONARY HAEMORRHAGE [None]
